FAERS Safety Report 6733316-4 (Version None)
Quarter: 2010Q2

REPORT INFORMATION
  Report Type: 
  Country: None (occurrence: None)
  Receive Date: 20100520
  Receipt Date: 20100511
  Transmission Date: 20101027
  Serious: Yes (Other)
  Sender: FDA-Public Use
  Company Number: BR-PFIZER INC-2010059039

PATIENT
  Age: 44 Year
  Sex: Female
  Weight: 59 kg

DRUGS (1)
  1. DOSTINEX [Suspect]
     Indication: LACTATION INHIBITION THERAPY
     Dosage: 1 MG, 1X/DAY, SINGLE DOSE
     Route: 048
     Dates: start: 20100510, end: 20100510

REACTIONS (4)
  - DIZZINESS [None]
  - HEADACHE [None]
  - HYPOTENSION [None]
  - SEDATION [None]
